FAERS Safety Report 9424857 (Version 2)
Quarter: 2013Q3

REPORT INFORMATION
  Report Type: Spontaneous
  Country: US (occurrence: US)
  Receive Date: 20130729
  Receipt Date: 20130812
  Transmission Date: 20140515
  Serious: No
  Sender: FDA-Public Use
  Company Number: US-PFIZER INC-2013216399

PATIENT
  Age: 58 Year
  Sex: Male
  Weight: 81.63 kg

DRUGS (5)
  1. LEVOXYL [Suspect]
     Indication: HYPOTHYROIDISM
     Dosage: 75 UG, UNK
  2. LEVOXYL [Suspect]
     Dosage: 88 UG, UNK
     Dates: start: 2013
  3. LEVOXYL [Suspect]
     Dosage: UNK
  4. LEVOXYL [Suspect]
     Dosage: UNK
     Dates: end: 201306
  5. JANUMET [Concomitant]
     Indication: DIABETES MELLITUS
     Dosage: UNK

REACTIONS (3)
  - Drug ineffective [Recovered/Resolved]
  - Drug intolerance [Unknown]
  - Palpitations [Recovered/Resolved]
